FAERS Safety Report 9238562 (Version 3)
Quarter: 2013Q2

REPORT INFORMATION
  Report Type: Spontaneous
  Country: US (occurrence: None)
  Receive Date: 20130416
  Receipt Date: 20130514
  Transmission Date: 20140414
  Serious: Yes (Disabling, Other)
  Sender: FDA-Public Use
  Company Number: 1304-474

PATIENT
  Age: 72 Year
  Sex: Female

DRUGS (9)
  1. EYLEA [Suspect]
     Indication: AGE-RELATED MACULAR DEGENERATION
     Dosage: 1 IN 10 WK, INTRAVITREAL
     Dates: start: 20120103, end: 20130326
  2. DUREZOL (DIFLUPREDNATE) [Concomitant]
  3. LIPITOR (ATORVASTATIN CALCIUM) [Concomitant]
  4. LOTREL (COROVAL B) [Concomitant]
  5. HCTZ (HYDROCHLOROTHIAZIDE) [Concomitant]
  6. LEVOTHYROXINE (LEVOTHYROXINE) [Concomitant]
  7. VESICARE (SOLIFENACIN SUCCINATE) [Concomitant]
  8. ASA (ACETYLSALICYLIC ACID) [Concomitant]
  9. MULTIVITAMIN (VITAMINS NOS) [Concomitant]

REACTIONS (2)
  - Endophthalmitis [None]
  - Blindness transient [None]
